FAERS Safety Report 18170833 (Version 4)
Quarter: 2020Q4

REPORT INFORMATION
  Report Type: Spontaneous
  Country: DE (occurrence: DE)
  Receive Date: 20200819
  Receipt Date: 20201231
  Transmission Date: 20210113
  Serious: Yes (Life-Threatening, Hospitalization, Disabling)
  Sender: FDA-Public Use
  Company Number: DE-ALLERGAN-2030061US

PATIENT
  Sex: Male
  Weight: 90 kg

DRUGS (62)
  1. DEX UNK [Suspect]
     Active Substance: UNSPECIFIED INGREDIENT
     Indication: PROCEDURAL VOMITING
  2. DEXAMETHASONE. [Suspect]
     Active Substance: DEXAMETHASONE
     Indication: VISION BLURRED
     Dosage: 1 MG, QD
     Route: 048
     Dates: start: 20180515, end: 20180603
  3. DEXAMETHASONE. [Suspect]
     Active Substance: DEXAMETHASONE
     Dosage: 4 MG, QD
     Route: 048
     Dates: start: 20180124, end: 20180220
  4. COBIMETINIB. [Suspect]
     Active Substance: COBIMETINIB
     Dosage: 20 MG X 3 (60 MG)
     Route: 048
     Dates: start: 20170823, end: 20170828
  5. FOLVERLAN [Concomitant]
     Active Substance: FOLIC ACID
     Indication: PROPHYLAXIS
     Dosage: 5 MG, QD
     Route: 048
     Dates: start: 20181022, end: 20181203
  6. DEXAMETHASONE. [Suspect]
     Active Substance: DEXAMETHASONE
     Indication: BRAIN OEDEMA
     Dosage: 0.5 MG, BID
     Route: 048
     Dates: start: 20180807, end: 20180820
  7. COBIMETINIB. [Suspect]
     Active Substance: COBIMETINIB
     Dosage: 40 MG, QD
     Route: 048
     Dates: start: 20170831, end: 20170903
  8. FERRO SANOL [Concomitant]
     Active Substance: FERROUS GLYCINE SULFATE
     Indication: PROPHYLAXIS
     Dosage: 100 MG, QD
     Route: 048
     Dates: start: 20181022, end: 20181203
  9. MOVICOL [Concomitant]
     Active Substance: POLYETHYLENE GLYCOL 3350\POTASSIUM CHLORIDE\SODIUM BICARBONATE\SODIUM CHLORIDE
     Indication: CONSTIPATION
  10. METOPROLOL. [Concomitant]
     Active Substance: METOPROLOL
     Indication: VASCULAR GRAFT
     Dosage: 95 MG, Q12H
     Route: 048
     Dates: start: 20140501
  11. ACETYLSALICYLIC ACID [Concomitant]
     Active Substance: ASPIRIN
     Indication: VASCULAR GRAFT
     Dosage: 100 MG, QD
     Route: 048
     Dates: start: 20140501
  12. DEX UNK [Suspect]
     Active Substance: UNSPECIFIED INGREDIENT
     Indication: PROCEDURAL HEADACHE
  13. DEX UNK [Suspect]
     Active Substance: UNSPECIFIED INGREDIENT
     Indication: PROCEDURAL HEADACHE
     Dosage: UNK
     Route: 047
     Dates: start: 20170927, end: 20171102
  14. DEX UNK [Suspect]
     Active Substance: UNSPECIFIED INGREDIENT
     Indication: PROCEDURAL VOMITING
  15. DEXAMETHASONE. [Suspect]
     Active Substance: DEXAMETHASONE
     Indication: PROCEDURAL NAUSEA
     Dosage: 4 MG, QD
     Route: 048
     Dates: start: 20180607, end: 20180611
  16. DEXAMETHASONE. [Suspect]
     Active Substance: DEXAMETHASONE
     Dosage: 4 MG, QD
     Route: 048
     Dates: start: 20170904, end: 20170921
  17. COBIMETINIB. [Suspect]
     Active Substance: COBIMETINIB
     Dosage: 40 MG, QD
     Route: 048
     Dates: start: 20170903, end: 20170903
  18. MOVICOL [Concomitant]
     Active Substance: POLYETHYLENE GLYCOL 3350\POTASSIUM CHLORIDE\SODIUM BICARBONATE\SODIUM CHLORIDE
     Indication: PROPHYLAXIS
     Dosage: 1381 MG, QD
     Route: 048
     Dates: start: 20190421, end: 20190507
  19. PANTOPRAZOLE [Concomitant]
     Active Substance: PANTOPRAZOLE
     Indication: PROPHYLAXIS
     Dosage: 40 MG, QD
     Route: 048
     Dates: start: 20170201
  20. VOMEX A [Concomitant]
     Active Substance: DIMENHYDRINATE
     Indication: PROPHYLAXIS OF NAUSEA AND VOMITING
     Dosage: 50 MG, TID(IN CASE OF NAUSEA MAX 3 TIMES PER DAY)
     Dates: start: 20180620, end: 20191119
  21. DEX UNK [Suspect]
     Active Substance: UNSPECIFIED INGREDIENT
     Indication: METASTASES TO CENTRAL NERVOUS SYSTEM
  22. DEX UNK [Suspect]
     Active Substance: UNSPECIFIED INGREDIENT
     Indication: PROCEDURAL NAUSEA
  23. DEX UNK [Suspect]
     Active Substance: UNSPECIFIED INGREDIENT
     Indication: BRAIN OEDEMA
     Dosage: 1 MG(EYE OINTMENT), QD
     Route: 047
     Dates: start: 20170929
  24. DEX UNK [Suspect]
     Active Substance: UNSPECIFIED INGREDIENT
     Indication: METASTASES TO CENTRAL NERVOUS SYSTEM
  25. DEX UNK [Suspect]
     Active Substance: UNSPECIFIED INGREDIENT
     Indication: VISION BLURRED
  26. VEMURAFENIB. [Suspect]
     Active Substance: VEMURAFENIB
     Dosage: 720 MG, QD
     Route: 048
     Dates: start: 20170904, end: 20170906
  27. VEMURAFENIB. [Suspect]
     Active Substance: VEMURAFENIB
     Dosage: 480 MG, QD
     Route: 048
     Dates: start: 20170903, end: 20170903
  28. COBIMETINIB. [Suspect]
     Active Substance: COBIMETINIB
     Indication: METASTATIC MALIGNANT MELANOMA
     Dosage: 40 MG, QD
     Route: 048
     Dates: start: 20171113, end: 20180423
  29. COBIMETINIB. [Suspect]
     Active Substance: COBIMETINIB
     Dosage: 40 MG, QD
     Route: 048
     Dates: start: 20180424, end: 20180514
  30. VIMPAT [Concomitant]
     Active Substance: LACOSAMIDE
     Indication: PROPHYLAXIS
     Dosage: 100 MG, QD
     Route: 048
     Dates: start: 20190426
  31. VIMPAT [Concomitant]
     Active Substance: LACOSAMIDE
     Indication: EPILEPSY
  32. METOPROLOL. [Concomitant]
     Active Substance: METOPROLOL
     Indication: HYPERTENSION
  33. ACETYLSALICYLIC ACID [Concomitant]
     Active Substance: ASPIRIN
     Indication: HYPERTENSION
  34. DEXAMETHASONE. [Suspect]
     Active Substance: DEXAMETHASONE
     Indication: SEROUS RETINOPATHY
     Dosage: 2 MG, QD
     Route: 048
     Dates: start: 20180710, end: 20180723
  35. DEXAMETHASONE. [Suspect]
     Active Substance: DEXAMETHASONE
     Dosage: 12 MG, QD
     Route: 048
     Dates: start: 20170828, end: 20170831
  36. VEMURAFENIB. [Suspect]
     Active Substance: VEMURAFENIB
     Indication: METASTATIC MALIGNANT MELANOMA
     Dosage: 720 MG, QD
     Route: 048
     Dates: start: 20170907, end: 20180308
  37. ASPIRIN. [Concomitant]
     Active Substance: ASPIRIN
     Indication: VASCULAR GRAFT
  38. VOMEX A [Concomitant]
     Active Substance: DIMENHYDRINATE
     Indication: PAIN
  39. SIMVASTATIN. [Concomitant]
     Active Substance: SIMVASTATIN
     Indication: HYPERTENSION
     Dosage: 30 MG, QD
     Route: 048
     Dates: start: 20150501
  40. RAMIPRIL. [Concomitant]
     Active Substance: RAMIPRIL
     Indication: HYPERTENSION
     Dosage: 5 MG, QD (MOST RECENT DOSE 02-NOV-2017)
     Route: 048
     Dates: start: 20140501
  41. DEX UNK [Suspect]
     Active Substance: UNSPECIFIED INGREDIENT
     Indication: PROCEDURAL NAUSEA
  42. DEXAMETHASONE. [Suspect]
     Active Substance: DEXAMETHASONE
     Indication: PROCEDURAL HEADACHE
     Dosage: 0.5 MG, TID
     Route: 048
     Dates: start: 20180724, end: 20180806
  43. DEXAMETHASONE. [Suspect]
     Active Substance: DEXAMETHASONE
     Indication: METASTASES TO CENTRAL NERVOUS SYSTEM
     Dosage: 3 MG, QD
     Route: 048
     Dates: start: 20180612, end: 20180709
  44. DEXAMETHASONE. [Suspect]
     Active Substance: DEXAMETHASONE
     Dosage: UNK, QD
     Route: 048
     Dates: start: 20171103, end: 20190223
  45. COBIMETINIB. [Suspect]
     Active Substance: COBIMETINIB
     Dosage: 60 MG, QD
     Route: 048
     Dates: start: 20170904, end: 20180423
  46. ASPIRIN. [Concomitant]
     Active Substance: ASPIRIN
     Indication: HYPERTENSION
     Dosage: 100 MG, QD
     Route: 048
     Dates: start: 20140501
  47. LEVETIRACETAM. [Concomitant]
     Active Substance: LEVETIRACETAM
     Indication: METASTASES TO CENTRAL NERVOUS SYSTEM
  48. MONO EMBOLEX [Concomitant]
     Active Substance: CERTOPARIN SODIUM
     Indication: PROPHYLAXIS
     Dosage: 3000 IU, QD
     Route: 058
     Dates: start: 20170131
  49. DEX UNK [Suspect]
     Active Substance: UNSPECIFIED INGREDIENT
     Indication: BRAIN OEDEMA
  50. DEX UNK [Suspect]
     Active Substance: UNSPECIFIED INGREDIENT
     Indication: SEROUS RETINOPATHY
  51. DEXAMETHASONE. [Suspect]
     Active Substance: DEXAMETHASONE
     Indication: PROCEDURAL VOMITING
     Dosage: 0.5 MG, BID
     Route: 048
     Dates: start: 20180604, end: 20180606
  52. DEXAMETHASONE. [Suspect]
     Active Substance: DEXAMETHASONE
     Dosage: 2 MG, QD
     Route: 048
     Dates: start: 20170922, end: 20180123
  53. LEVETIRACETAM. [Concomitant]
     Active Substance: LEVETIRACETAM
     Indication: MALIGNANT MELANOMA
     Dosage: 1250 MG, Q12H
     Route: 048
  54. DEX UNK [Suspect]
     Active Substance: UNSPECIFIED INGREDIENT
     Indication: SEROUS RETINOPATHY
     Dosage: 1 MG, BID(EYE DROPS)
     Route: 047
     Dates: start: 20170929
  55. DEX UNK [Suspect]
     Active Substance: UNSPECIFIED INGREDIENT
     Indication: VISION BLURRED
  56. DEXAMETHASONE. [Suspect]
     Active Substance: DEXAMETHASONE
     Dosage: 1 MG, BID
     Route: 048
     Dates: start: 20180409, end: 20180515
  57. DEXAMETHASONE. [Suspect]
     Active Substance: DEXAMETHASONE
     Dosage: 8 MG, QD
     Route: 048
     Dates: start: 20170901, end: 20170903
  58. VEMURAFENIB. [Suspect]
     Active Substance: VEMURAFENIB
     Dosage: 960 MG, QD
     Route: 048
     Dates: start: 20180314, end: 20180619
  59. VEMURAFENIB. [Suspect]
     Active Substance: VEMURAFENIB
     Dosage: 480 MG, QD
     Route: 048
     Dates: start: 20170827, end: 20170828
  60. VEMURAFENIB. [Suspect]
     Active Substance: VEMURAFENIB
     Dosage: DOSE 240 MG X 4 (960 MG)
     Route: 048
     Dates: start: 20170823, end: 20170826
  61. SIMVASTATIN. [Concomitant]
     Active Substance: SIMVASTATIN
     Indication: VASCULAR GRAFT
  62. RAMIPRIL. [Concomitant]
     Active Substance: RAMIPRIL
     Indication: VASCULAR GRAFT

REACTIONS (37)
  - Pain in extremity [Not Recovered/Not Resolved]
  - Muscular weakness [Unknown]
  - Cough [Recovered/Resolved]
  - Skin mass [Unknown]
  - Peripheral sensorimotor neuropathy [Unknown]
  - Cataract [Not Recovered/Not Resolved]
  - Pyrexia [Recovered/Resolved]
  - Cerebral ischaemia [Recovered/Resolved with Sequelae]
  - Brain oedema [Not Recovered/Not Resolved]
  - Peripheral motor neuropathy [Unknown]
  - Epilepsy [Unknown]
  - Serous retinopathy [Recovered/Resolved with Sequelae]
  - Small intestinal haemorrhage [Recovered/Resolved]
  - Spinal osteoarthritis [Not Recovered/Not Resolved]
  - Skin infection [Unknown]
  - Dysgeusia [Recovered/Resolved]
  - Skin hypopigmentation [Not Recovered/Not Resolved]
  - Skin exfoliation [Unknown]
  - Hyperglycaemia [Recovering/Resolving]
  - Subcutaneous abscess [Recovered/Resolved]
  - Intervertebral disc protrusion [Not Recovered/Not Resolved]
  - Lymphoedema [Unknown]
  - Metastases to central nervous system [Unknown]
  - Fall [Unknown]
  - Peripheral sensory neuropathy [Unknown]
  - Hyperkeratosis [Unknown]
  - Dermal cyst [Not Recovered/Not Resolved]
  - Peripheral nerve lesion [Unknown]
  - Mucosal dryness [Recovered/Resolved]
  - Fatigue [Recovered/Resolved]
  - Epidural lipomatosis [Not Recovered/Not Resolved]
  - Dizziness [Unknown]
  - Conjunctivitis [Not Recovered/Not Resolved]
  - Pulmonary embolism [Unknown]
  - Monoparesis [Not Recovered/Not Resolved]
  - Photosensitivity reaction [Recovered/Resolved]
  - Vision blurred [Recovered/Resolved]

NARRATIVE: CASE EVENT DATE: 20170823
